FAERS Safety Report 6349446-5 (Version None)
Quarter: 2009Q3

REPORT INFORMATION
  Report Type: 
  Country: None (occurrence: None)
  Receive Date: 20090911
  Receipt Date: 20090902
  Transmission Date: 20100115
  Serious: Yes (Hospitalization, Disabling, Other)
  Sender: FDA-Public Use
  Company Number: BE-ABBOTT-08P-013-0491682-00

PATIENT
  Sex: Male

DRUGS (2)
  1. HUMIRA [Suspect]
     Indication: PSORIATIC ARTHROPATHY
     Dates: start: 20080309
  2. ARAVA [Concomitant]
     Indication: PSORIATIC ARTHROPATHY

REACTIONS (16)
  - ACUTE DISSEMINATED ENCEPHALOMYELITIS [None]
  - AFFECT LABILITY [None]
  - AMNESIA [None]
  - ANOSOGNOSIA [None]
  - APRAXIA [None]
  - BLINDNESS [None]
  - CEREBRAL DISORDER [None]
  - CONFUSIONAL STATE [None]
  - DISORIENTATION [None]
  - DIZZINESS [None]
  - HEADACHE [None]
  - ILL-DEFINED DISORDER [None]
  - LOCKED-IN SYNDROME [None]
  - MULTIPLE SCLEROSIS [None]
  - PSORIATIC ARTHROPATHY [None]
  - VISUAL IMPAIRMENT [None]
